FAERS Safety Report 4490692-3 (Version None)
Quarter: 2004Q4

REPORT INFORMATION
  Report Type: 
  Country: None (occurrence: None)
  Receive Date: 20041102
  Receipt Date: 20041021
  Transmission Date: 20050328
  Serious: Yes (Hospitalization)
  Sender: FDA-Public Use
  Company Number: CH-GLAXOSMITHKLINE-B0349639A

PATIENT
  Age: 40 Year
  Sex: Male
  Weight: 67 kg

DRUGS (6)
  1. TRIZIVIR [Suspect]
     Route: 048
     Dates: start: 20040802, end: 20040802
  2. STOCRIN [Suspect]
     Route: 048
     Dates: start: 20040802, end: 20040802
  3. FLUOXETINE HYDROCHLORIDE [Suspect]
     Dosage: 200MG PER DAY
     Route: 048
     Dates: start: 20040802, end: 20040802
  4. VIREAD [Suspect]
     Route: 048
     Dates: start: 20040802, end: 20040802
  5. SLEEPING TABLETS (UNSPECIFIED) [Suspect]
     Dates: start: 20040802
  6. MARCOUMAR [Concomitant]
     Indication: PORTAL VEIN THROMBOSIS
     Dosage: 3MG PER DAY
     Route: 048
     Dates: start: 20031001

REACTIONS (7)
  - ATAXIA [None]
  - DIARRHOEA [None]
  - DIPLOPIA [None]
  - FATIGUE [None]
  - SOMNOLENCE [None]
  - SUICIDE ATTEMPT [None]
  - VOMITING [None]
